FAERS Safety Report 4376424-8 (Version None)
Quarter: 2004Q2

REPORT INFORMATION
  Report Type: 
  Country: None (occurrence: None)
  Receive Date: 20040610
  Receipt Date: 20040610
  Transmission Date: 20050107
  Serious: No
  Sender: FDA-Public Use
  Company Number: None

PATIENT
  Age: 32 Year
  Sex: Female
  Weight: 51.2565 kg

DRUGS (1)
  1. TEQUIN [Suspect]
     Indication: CYSTITIS
     Dosage: ONCE A DAY ORAL
     Route: 048

REACTIONS (5)
  - DIZZINESS [None]
  - FEELING ABNORMAL [None]
  - NAUSEA [None]
  - NERVOUSNESS [None]
  - PANIC DISORDER [None]
